FAERS Safety Report 5553332-8 (Version None)
Quarter: 2007Q4

REPORT INFORMATION
  Report Type: 
  Country: None (occurrence: None)
  Receive Date: 20071207
  Receipt Date: 20071207
  Transmission Date: 20080405
  Serious: Yes (Other)
  Sender: FDA-Public Use
  Company Number: None

PATIENT
  Age: 66 Year
  Sex: Male
  Weight: 106.5953 kg

DRUGS (1)
  1. CORTIFOAM [Suspect]
     Indication: GASTROENTERITIS RADIATION
     Dosage: ONE APPLICATOR FULL  2 TIMES A DAY  RECTAL
     Route: 054
     Dates: start: 20071204, end: 20071206

REACTIONS (7)
  - APPLICATION SITE IRRITATION [None]
  - APPLICATION SITE PAIN [None]
  - ECONOMIC PROBLEM [None]
  - HOMELESS [None]
  - MOOD ALTERED [None]
  - PAIN [None]
  - PAINFUL DEFAECATION [None]
